FAERS Safety Report 4715353-4 (Version None)
Quarter: 2005Q3

REPORT INFORMATION
  Report Type: 
  Country: None (occurrence: None)
  Receive Date: 20050715
  Receipt Date: 20030617
  Transmission Date: 20060218
  Serious: Yes (Hospitalization, Disabling)
  Sender: FDA-Public Use
  Company Number: US-MERCK-0306USA02099

PATIENT
  Age: 44 Year
  Sex: Female
  Weight: 91 kg

DRUGS (9)
  1. VIOXX [Suspect]
     Indication: SCIATIC NERVE INJURY
     Route: 048
     Dates: start: 20000406, end: 20010301
  2. VIOXX [Suspect]
     Route: 048
     Dates: start: 20010301, end: 20010601
  3. DIOVAN [Concomitant]
     Indication: HYPERTENSION
     Route: 065
     Dates: start: 19980101, end: 20010101
  4. ULTRAM [Concomitant]
     Route: 065
     Dates: start: 19990101, end: 20010101
  5. OXYCODONE [Concomitant]
     Route: 065
     Dates: start: 19990101, end: 20010101
  6. ZANTAC [Concomitant]
     Route: 048
     Dates: start: 19920101
  7. PROZAC [Concomitant]
     Route: 065
  8. MAXALT [Concomitant]
     Route: 048
     Dates: start: 20000201
  9. ZOLOFT [Concomitant]
     Route: 065

REACTIONS (40)
  - ACUTE CORONARY SYNDROME [None]
  - ACUTE MYOCARDIAL INFARCTION [None]
  - ACUTE RESPIRATORY FAILURE [None]
  - ANGINA UNSTABLE [None]
  - ARTHRALGIA [None]
  - CARDIAC FAILURE CONGESTIVE [None]
  - CARDIOGENIC SHOCK [None]
  - CEREBROVASCULAR ACCIDENT [None]
  - CHEST PAIN [None]
  - CONGESTIVE CARDIOMYOPATHY [None]
  - CORONARY ARTERY DISEASE [None]
  - DEPRESSION [None]
  - DIZZINESS [None]
  - EMOTIONAL DISTRESS [None]
  - ENCEPHALOPATHY [None]
  - FATIGUE [None]
  - FOLLICULITIS [None]
  - GASTROOESOPHAGEAL REFLUX DISEASE [None]
  - HEADACHE [None]
  - HEART RATE INCREASED [None]
  - HYPERCHOLESTEROLAEMIA [None]
  - HYPERTENSION [None]
  - INTERVERTEBRAL DISC PROTRUSION [None]
  - ISCHAEMIC CARDIOMYOPATHY [None]
  - ISCHAEMIC HEPATITIS [None]
  - LUMBAR RADICULOPATHY [None]
  - LUNG INFILTRATION [None]
  - MIGRAINE [None]
  - MULTI-ORGAN FAILURE [None]
  - MUSCLE SPASMS [None]
  - OEDEMA PERIPHERAL [None]
  - PANIC DISORDER [None]
  - RENAL FAILURE ACUTE [None]
  - TENDONITIS [None]
  - THYROID NEOPLASM [None]
  - ULCER HAEMORRHAGE [None]
  - URINARY TRACT INFECTION [None]
  - VENTRICULAR FIBRILLATION [None]
  - VENTRICULAR TACHYCARDIA [None]
  - VISUAL DISTURBANCE [None]
